FAERS Safety Report 17012825 (Version 1)
Quarter: 2019Q4

REPORT INFORMATION
  Report Type: Report from Study
  Country: AR (occurrence: AR)
  Receive Date: 20191109
  Receipt Date: 20191109
  Transmission Date: 20200122
  Serious: Yes (Other)
  Sender: FDA-Public Use
  Company Number: NVSC2019AR027730

PATIENT
  Age: 43 Year
  Sex: Female

DRUGS (1)
  1. ILARIS [Suspect]
     Active Substance: CANAKINUMAB
     Indication: CRYOPYRIN ASSOCIATED PERIODIC SYNDROME
     Dosage: 150 MG
     Route: 065
     Dates: start: 20190506

REACTIONS (4)
  - Headache [Unknown]
  - Deafness [Unknown]
  - Irritability [Unknown]
  - Eye inflammation [Unknown]

NARRATIVE: CASE EVENT DATE: 20191028
